FAERS Safety Report 6572387-5 (Version None)
Quarter: 2010Q1

REPORT INFORMATION
  Report Type: 
  Country: None (occurrence: None)
  Receive Date: 20100205
  Receipt Date: 20100201
  Transmission Date: 20100710
  Serious: Yes (Other)
  Sender: FDA-Public Use
  Company Number: FR-BRISTOL-MYERS SQUIBB COMPANY-14958409

PATIENT
  Age: 54 Year
  Sex: Female

DRUGS (1)
  1. KENACORT [Suspect]
     Route: 030
     Dates: start: 20051001

REACTIONS (3)
  - ATROPHY [None]
  - PAIN [None]
  - SKIN NECROSIS [None]
